FAERS Safety Report 15546022 (Version 2)
Quarter: 2018Q4

REPORT INFORMATION
  Report Type: Spontaneous
  Country: FR (occurrence: FR)
  Receive Date: 20181024
  Receipt Date: 20181120
  Transmission Date: 20190205
  Serious: Yes (Hospitalization, Other)
  Sender: FDA-Public Use
  Company Number: FR-PFIZER INC-2018418426

PATIENT
  Age: 70 Year
  Sex: Female
  Weight: 63 kg

DRUGS (4)
  1. COAPROVEL [Concomitant]
     Active Substance: HYDROCHLOROTHIAZIDE\IRBESARTAN
  2. ALEPSAL [CAFFEINE;PHENOBARBITAL] [Suspect]
     Active Substance: CAFFEINE\PHENOBARBITAL
     Indication: SUICIDE ATTEMPT
     Dosage: 300 MG, UNK
     Route: 048
     Dates: start: 20180810
  3. KARDEGIC [Concomitant]
     Active Substance: ASPIRIN DL-LYSINE
     Dosage: UNK
  4. AMLODIPINE BESILATE [Suspect]
     Active Substance: AMLODIPINE BESYLATE
     Indication: SUICIDE ATTEMPT
     Dosage: 25 MG, UNK
     Route: 048
     Dates: start: 20180810

REACTIONS (5)
  - Suicide attempt [Unknown]
  - Blood creatine phosphokinase increased [Recovered/Resolved]
  - Intentional overdose [Unknown]
  - Blood lactic acid increased [Recovered/Resolved]
  - Headache [Recovered/Resolved]

NARRATIVE: CASE EVENT DATE: 20180810
